FAERS Safety Report 9001631 (Version 1)
Quarter: 2013Q1

REPORT INFORMATION
  Report Type: Spontaneous
  Country: GB (occurrence: GB)
  Receive Date: 20130107
  Receipt Date: 20130107
  Transmission Date: 20140127
  Serious: Yes (Other)
  Sender: FDA-Public Use
  Company Number: GB-PFIZER INC-2013000927

PATIENT
  Age: 40 Year
  Sex: Female
  Weight: 64 kg

DRUGS (6)
  1. SULFASALAZINE [Suspect]
     Indication: RHEUMATOID ARTHRITIS
     Dosage: 4 DF, UNK
     Route: 048
     Dates: start: 20121217
  2. SLO-PHYLLIN [Concomitant]
  3. VENTOLIN [Concomitant]
  4. AMITRIPTYLINE [Concomitant]
  5. CODEINE [Concomitant]
  6. IPRATROPIUM BROMIDE [Concomitant]

REACTIONS (4)
  - Rash [Recovering/Resolving]
  - Erythema [Recovering/Resolving]
  - Lip swelling [Recovering/Resolving]
  - Mouth ulceration [Recovering/Resolving]
